FAERS Safety Report 7538779-2 (Version None)
Quarter: 2011Q2

REPORT INFORMATION
  Report Type: 
  Country: None (occurrence: None)
  Receive Date: 20110610
  Receipt Date: 20110120
  Transmission Date: 20111010
  Serious: Yes (Other)
  Sender: FDA-Public Use
  Company Number: US-BAYER-201038327NA

PATIENT
  Age: 28 Year
  Sex: Female
  Weight: 120.18 kg

DRUGS (4)
  1. YASMIN [Suspect]
     Indication: CONTRACEPTION
     Dosage: UNK
     Dates: start: 20050101, end: 20070101
  2. YASMIN [Suspect]
     Indication: PREMENSTRUAL SYNDROME
  3. HYDROCHLOROTHIAZIDE [Concomitant]
     Indication: HYPERTENSION
     Dosage: UNK
     Dates: start: 20050101, end: 20061217
  4. ADVIL LIQUI-GELS [Concomitant]
     Indication: HEADACHE

REACTIONS (5)
  - PALPITATIONS [None]
  - HEART RATE INCREASED [None]
  - SINUS TACHYCARDIA [None]
  - CARDIAC FAILURE CONGESTIVE [None]
  - CARDIAC MURMUR [None]
